FAERS Safety Report 22247943 (Version 1)
Quarter: 2023Q2

REPORT INFORMATION
  Report Type: Spontaneous
  Country: US (occurrence: None)
  Receive Date: 20230425
  Receipt Date: 20230425
  Transmission Date: 20230721
  Serious: No
  Sender: FDA-Public Use
  Company Number: US-SUPERNUS Pharmaceuticals, Inc.-SUP202211-003983

PATIENT
  Age: 13 Year
  Sex: Female

DRUGS (6)
  1. QELBREE [Suspect]
     Active Substance: VILOXAZINE HYDROCHLORIDE
     Indication: Product used for unknown indication
     Dosage: NOT PROVIDED
     Dates: start: 202201
  2. ABILIFY [Suspect]
     Active Substance: ARIPIPRAZOLE
     Indication: Product used for unknown indication
     Dosage: NOT PROVIDED
  3. GUANFACINE [Concomitant]
     Active Substance: GUANFACINE
     Dosage: NOT PROVIDED
  4. TRAZODONE [Concomitant]
     Active Substance: TRAZODONE HYDROCHLORIDE
     Dosage: NOT PROVIDED
  5. CETIRIZINE [Concomitant]
     Active Substance: CETIRIZINE HYDROCHLORIDE
     Dosage: NOT PROVIDED
  6. HYDROXYZINE [Concomitant]
     Active Substance: HYDROXYZINE HYDROCHLORIDE
     Dosage: NOT PROVIDED

REACTIONS (1)
  - Amphetamines positive [Unknown]

NARRATIVE: CASE EVENT DATE: 20220101
